FAERS Safety Report 9195982 (Version 1)
Quarter: 2013Q1

REPORT INFORMATION
  Report Type: Spontaneous
  Country: US (occurrence: None)
  Receive Date: 20120703
  Receipt Date: 20120703
  Transmission Date: 20140127
  Serious: No
  Sender: FDA-Public Use
  Company Number: PHEH2011US013101

PATIENT
  Sex: Male
  Weight: 117.9 kg

DRUGS (1)
  1. GILENYA (FTY) CAPSULE, 0.5MG [Suspect]
     Indication: MULTIPLE SCLEROSIS
     Route: 048
     Dates: start: 20110411

REACTIONS (4)
  - Muscle twitching [None]
  - Muscular weakness [None]
  - Muscle spasms [None]
  - Paraesthesia [None]
